FAERS Safety Report 7585993-6 (Version None)
Quarter: 2011Q3

REPORT INFORMATION
  Report Type: 
  Country: None (occurrence: None)
  Receive Date: 20110701
  Receipt Date: 20110623
  Transmission Date: 20111222
  Serious: Yes (Hospitalization)
  Sender: FDA-Public Use
  Company Number: US-ASTELLAS-2011US003395

PATIENT
  Sex: Female
  Weight: 111 kg

DRUGS (3)
  1. ERLOTINIB HYDROCHLORIDE [Suspect]
     Indication: BILE DUCT CANCER
     Dosage: 100 MG, CYCLIC
     Route: 048
     Dates: start: 20110329
  2. OXALIPLATIN [Suspect]
     Indication: BILE DUCT CANCER
     Dosage: 85 MG/M2, UNKNOWN/D
     Route: 042
     Dates: start: 20110329
  3. GEMCITABINE [Suspect]
     Indication: BILE DUCT CANCER
     Dosage: 1000 MG/M2, UNKNOWN/D
     Route: 042
     Dates: start: 20110329

REACTIONS (2)
  - PAIN [None]
  - FATIGUE [None]
